FAERS Safety Report 18106073 (Version 2)
Quarter: 2020Q3

REPORT INFORMATION
  Report Type: Spontaneous
  Country: JP (occurrence: JP)
  Receive Date: 20200803
  Receipt Date: 20200826
  Transmission Date: 20201103
  Serious: Yes (Death, Hospitalization, Other)
  Sender: FDA-Public Use
  Company Number: JP-ASTRAZENECA-2020SE96536

PATIENT
  Age: 71 Year
  Sex: Male

DRUGS (14)
  1. CELECOX [Suspect]
     Active Substance: CELECOXIB
     Indication: BACK PAIN
     Route: 065
  2. LITHIUM CARBONATE. [Concomitant]
     Active Substance: LITHIUM CARBONATE
     Route: 048
  3. PICOSULFATE [Concomitant]
     Active Substance: SODIUM PICOSULFATE
     Route: 048
  4. MEDICON [DEXTROMETHORPHAN HYDROBROMIDE] [Concomitant]
     Active Substance: DEXTROMETHORPHAN HYDROBROMIDE
     Route: 048
  5. CALCIUM LACTATE [Concomitant]
     Active Substance: CALCIUM LACTATE
     Route: 048
  6. CELECOX [Suspect]
     Active Substance: CELECOXIB
     Indication: CERVICOBRACHIAL SYNDROME
     Route: 065
  7. ALINAMIN?F [FURSULTIAMINE HYDROCHLORIDE] [Concomitant]
     Route: 048
  8. FOLIAMIN [Concomitant]
     Active Substance: FOLIC ACID
     Route: 048
  9. SENNOSIDE A [Concomitant]
     Active Substance: SENNOSIDE A
     Route: 048
  10. QUETIAPINE FUMARATE. [Suspect]
     Active Substance: QUETIAPINE FUMARATE
     Indication: PRODUCT USED FOR UNKNOWN INDICATION
     Dosage: 575 MG/DAY, UNKNOWN FREQ.
     Route: 048
  11. MAGNESIUM OXIDE. [Concomitant]
     Active Substance: MAGNESIUM OXIDE
     Route: 048
  12. NITRAZEPAM [Concomitant]
     Active Substance: NITRAZEPAM
     Route: 048
  13. AFLOQUALONE [Concomitant]
     Active Substance: AFLOQUALONE
     Route: 048
  14. CASTOR OIL. [Concomitant]
     Active Substance: CASTOR OIL
     Route: 048

REACTIONS (2)
  - Death [Fatal]
  - Ileus [Recovered/Resolved]

NARRATIVE: CASE EVENT DATE: 20200723
